FAERS Safety Report 24079084 (Version 1)
Quarter: 2024Q3

REPORT INFORMATION
  Report Type: Spontaneous
  Country: US (occurrence: None)
  Receive Date: 20240710
  Receipt Date: 20240710
  Transmission Date: 20241017
  Serious: No
  Sender: Public
  Company Number: None

PATIENT
  Age: 43 Year
  Sex: Female
  Weight: 81 kg

DRUGS (1)
  1. OLUMIANT [Suspect]
     Active Substance: BARICITINIB
     Indication: Alopecia areata
     Dosage: 2 MG DAILY ORAL
     Route: 048
     Dates: start: 20240119

REACTIONS (2)
  - Weight increased [None]
  - Weight fluctuation [None]

NARRATIVE: CASE EVENT DATE: 20240119
